FAERS Safety Report 10518284 (Version 1)
Quarter: 2014Q4

REPORT INFORMATION
  Report Type: Spontaneous
  Country: US (occurrence: None)
  Receive Date: 20141014
  Receipt Date: 20141014
  Transmission Date: 20150528
  Serious: Yes (Hospitalization)
  Sender: FDA-Public Use
  Company Number: None

PATIENT
  Age: 83 Year
  Sex: Male
  Weight: 73.6 kg

DRUGS (1)
  1. RANOLAZINE [Suspect]
     Active Substance: RANOLAZINE
     Indication: ANGINA PECTORIS
     Route: 048
     Dates: start: 20131122, end: 20131230

REACTIONS (7)
  - Hyperkalaemia [None]
  - Dizziness [None]
  - Nausea [None]
  - Blood creatinine increased [None]
  - Myalgia [None]
  - Blood urea increased [None]
  - Vomiting [None]

NARRATIVE: CASE EVENT DATE: 20131231
